FAERS Safety Report 4522716-9 (Version None)
Quarter: 2004Q4

REPORT INFORMATION
  Report Type: 
  Country: None (occurrence: None)
  Receive Date: 20041207
  Receipt Date: 20041118
  Transmission Date: 20050328
  Serious: Yes (Other)
  Sender: FDA-Public Use
  Company Number: JP_040904551

PATIENT
  Age: 84 Year
  Sex: Female

DRUGS (10)
  1. EVISTA [Suspect]
     Dosage: 60 MG/1 IN THE MORNING
     Dates: start: 20040705
  2. AMLODIPINE BESYLATE [Concomitant]
  3. BLOPRESS (CANDESARTAN CELEXETIL) [Concomitant]
  4. LANSOPRAZOLE [Concomitant]
  5. LENDORM [Concomitant]
  6. STAYBAN (FLURBIPROFEN) [Concomitant]
  7. PIRENOXINE [Concomitant]
  8. SELBEX (TEPRENONE) [Concomitant]
  9. INDOMETHACIN [Concomitant]
  10. VOLTAREN [Concomitant]

REACTIONS (2)
  - GINGIVAL BLEEDING [None]
  - PLATELET COUNT DECREASED [None]
